FAERS Safety Report 11753335 (Version 2)
Quarter: 2017Q1

REPORT INFORMATION
  Report Type: Report from Study
  Country: PL (occurrence: PL)
  Receive Date: 20151119
  Receipt Date: 20170220
  Transmission Date: 20170428
  Serious: Yes (Death, Hospitalization, Other)
  Sender: FDA-Public Use
  Company Number: PL-TEVA-608471ISR

PATIENT
  Age: 70 Year
  Sex: Male

DRUGS (6)
  1. PREDNISONE. [Suspect]
     Active Substance: PREDNISONE
     Indication: LYMPHOMA
     Dosage: 100 MILLIGRAM DAILY; LAST ADMINISTRATION DATE BEFORE AE OCCURENCE: 13OCT2015
     Dates: start: 20151009, end: 20151013
  2. VINCRISTINE TEVA [Suspect]
     Active Substance: VINCRISTINE
     Indication: LYMPHOMA
     Dosage: 2 MICROGRAM DAILY; LAST ADMINISTRATION DATE BEFORE AE OCCURENCE: 09OCT2015
     Route: 042
     Dates: start: 20151009, end: 20151009
  3. DOXORUBICIN [Suspect]
     Active Substance: DOXORUBICIN
     Indication: LYMPHOMA
     Dosage: 78 MILLIGRAM DAILY; LAST ADMINISTRATION DATE BEFORE AE OCCURENCE: 09OCT2015
     Route: 042
     Dates: start: 20151009, end: 20151009
  4. CYCLOPHOSPHAMID [Suspect]
     Active Substance: CYCLOPHOSPHAMIDE
     Indication: LYMPHOMA
     Dosage: 1171 MILLIGRAM DAILY; LAST ADMINISTRATION DATE BEFORE AE OCCURENCE: 09OCT2015
     Dates: start: 20151009, end: 20151009
  5. RITUXIMAB [Concomitant]
     Active Substance: RITUXIMAB
     Indication: LYMPHOMA
     Dates: start: 20151009, end: 20151009
  6. LONQUEX [Suspect]
     Active Substance: LIPEGFILGRASTIM
     Indication: PROPHYLAXIS
     Dosage: 6 MILLIGRAM DAILY; LAST ADMINISTRATION DATE BEFORE AE OCCURENCE: 13OCT2015
     Route: 058
     Dates: start: 20151013, end: 20151013

REACTIONS (2)
  - Cardiac arrest [Fatal]
  - Septic shock [Fatal]

NARRATIVE: CASE EVENT DATE: 20151019
